FAERS Safety Report 20988651 (Version 1)
Quarter: 2022Q2

REPORT INFORMATION
  Report Type: Spontaneous
  Country: CN (occurrence: CN)
  Receive Date: 20220621
  Receipt Date: 20220621
  Transmission Date: 20220720
  Serious: Yes (Other)
  Sender: FDA-Public Use
  Company Number: CN-PFIZER INC-PV202200004058

PATIENT
  Age: 6 Month
  Sex: Female
  Weight: 4.42 kg

DRUGS (1)
  1. LINEZOLID [Suspect]
     Active Substance: LINEZOLID
     Indication: Meningitis
     Dosage: 43 MG, 3X/DAY
     Route: 048
     Dates: start: 20220416, end: 20220420

REACTIONS (2)
  - Hyperkalaemia [Recovered/Resolved]
  - Off label use [Unknown]

NARRATIVE: CASE EVENT DATE: 20220416
